FAERS Safety Report 4383096-5 (Version None)
Quarter: 2004Q2

REPORT INFORMATION
  Report Type: 
  Country: None (occurrence: None)
  Receive Date: 20040618
  Receipt Date: 20040607
  Transmission Date: 20050107
  Serious: Yes (Life-Threatening, Hospitalization)
  Sender: FDA-Public Use
  Company Number: 04P-151-0263539-00

PATIENT
  Age: 90 Year
  Sex: Female
  Weight: 40 kg

DRUGS (11)
  1. ISOPTIN [Suspect]
     Indication: ATRIAL FIBRILLATION
     Dosage: 120 MG, 1 IN 1D, PER ORAL
     Route: 048
     Dates: end: 20040515
  2. METOPROLOL (METOPROLOL) [Suspect]
     Indication: ATRIAL FIBRILLATION
     Dosage: 50 MG, 3 IN 1 D, PER ORAL
     Route: 048
     Dates: start: 20040513, end: 20040514
  3. BISOPROLOL FUMARATE [Suspect]
     Indication: ATRIAL FIBRILLATION
     Dosage: 2.5 MG, 1 IN 1 D, PER ORAL
     Route: 048
  4. NICORANDIL [Concomitant]
  5. TORSEMIDE [Concomitant]
  6. ACETAMINOPHEN [Concomitant]
  7. MEROPENEM [Concomitant]
  8. HEPARIN SODIUM [Concomitant]
  9. CALCIUM EFF [Concomitant]
  10. VIDE 3 [Concomitant]
  11. MORPHINE [Concomitant]

REACTIONS (16)
  - ARTHRITIS INFECTIVE [None]
  - ATRIAL FIBRILLATION [None]
  - BRADYCARDIA [None]
  - BUNDLE BRANCH BLOCK LEFT [None]
  - CONDITION AGGRAVATED [None]
  - DRUG INTERACTION [None]
  - ELECTROCARDIOGRAM QRS COMPLEX PROLONGED [None]
  - LEFT VENTRICULAR FAILURE [None]
  - NECROSIS [None]
  - OSTEOMYELITIS [None]
  - PULMONARY EMBOLISM [None]
  - SCAR [None]
  - SUPERINFECTION [None]
  - TACHYCARDIA [None]
  - TACHYPNOEA [None]
  - VASCULAR GRAFT OCCLUSION [None]
